FAERS Safety Report 21372366 (Version 17)
Quarter: 2025Q2

REPORT INFORMATION
  Report Type: Report from Study
  Country: US (occurrence: US)
  Receive Date: 20220924
  Receipt Date: 20250623
  Transmission Date: 20250717
  Serious: Yes (Other)
  Sender: TAKEDA
  Company Number: US-TAKEDA-US201920900

PATIENT
  Age: 47 Year
  Sex: Male
  Weight: 95 kg

DRUGS (25)
  1. ICATIBANT [Suspect]
     Active Substance: ICATIBANT ACETATE
     Indication: Immune system disorder
  2. ICATIBANT [Suspect]
     Active Substance: ICATIBANT ACETATE
     Indication: Hereditary angioedema
  3. ICATIBANT [Suspect]
     Active Substance: ICATIBANT ACETATE
  4. ICATIBANT [Suspect]
     Active Substance: ICATIBANT ACETATE
  5. ICATIBANT [Suspect]
     Active Substance: ICATIBANT ACETATE
  6. ICATIBANT [Suspect]
     Active Substance: ICATIBANT ACETATE
  7. ICATIBANT [Suspect]
     Active Substance: ICATIBANT ACETATE
  8. ICATIBANT [Suspect]
     Active Substance: ICATIBANT ACETATE
  9. ICATIBANT [Suspect]
     Active Substance: ICATIBANT ACETATE
  10. ICATIBANT [Suspect]
     Active Substance: ICATIBANT ACETATE
  11. ICATIBANT [Suspect]
     Active Substance: ICATIBANT ACETATE
  12. ICATIBANT [Suspect]
     Active Substance: ICATIBANT ACETATE
  13. ICATIBANT [Suspect]
     Active Substance: ICATIBANT ACETATE
  14. ICATIBANT [Suspect]
     Active Substance: ICATIBANT ACETATE
  15. KALBITOR [Suspect]
     Active Substance: ECALLANTIDE
     Indication: Immune system disorder
  16. KALBITOR [Suspect]
     Active Substance: ECALLANTIDE
  17. KALBITOR [Suspect]
     Active Substance: ECALLANTIDE
  18. KALBITOR [Suspect]
     Active Substance: ECALLANTIDE
  19. KALBITOR [Suspect]
     Active Substance: ECALLANTIDE
  20. KALBITOR [Suspect]
     Active Substance: ECALLANTIDE
  21. KALBITOR [Suspect]
     Active Substance: ECALLANTIDE
  22. KALBITOR [Suspect]
     Active Substance: ECALLANTIDE
  23. KALBITOR [Suspect]
     Active Substance: ECALLANTIDE
  24. HAEGARDA [Concomitant]
     Active Substance: HUMAN C1-ESTERASE INHIBITOR
     Indication: Product used for unknown indication
  25. RUCONEST [Concomitant]
     Active Substance: CONESTAT ALFA

REACTIONS (15)
  - Vein rupture [Unknown]
  - Pneumonia [Unknown]
  - Tooth fracture [Unknown]
  - Weight increased [Unknown]
  - Arthropathy [Unknown]
  - Pain in extremity [Recovered/Resolved]
  - COVID-19 [Unknown]
  - Weight decreased [Unknown]
  - Scar [Unknown]
  - Arthralgia [Unknown]
  - Post procedural complication [Unknown]
  - Intervertebral disc protrusion [Unknown]
  - Drug ineffective [Unknown]
  - Hereditary angioedema [Recovered/Resolved]
  - Injection site reaction [Unknown]

NARRATIVE: CASE EVENT DATE: 20210914
